FAERS Safety Report 8829163 (Version 1)
Quarter: 2012Q4

REPORT INFORMATION
  Report Type: 
  Country: CA (occurrence: CA)
  Receive Date: 20121008
  Receipt Date: 20121008
  Transmission Date: 20130627
  Serious: Yes (Hospitalization)
  Sender: FDA-Public Use
  Company Number: PHHY2008CA26882

PATIENT
  Age: 67 Year
  Sex: Female

DRUGS (1)
  1. SANDOSTATIN LAR [Suspect]
     Indication: ANGIODYSPLASIA
     Dosage: 30 mg, QMO
     Route: 030
     Dates: start: 20051014

REACTIONS (4)
  - Road traffic accident [Unknown]
  - Head injury [Unknown]
  - Haematoma [Unknown]
  - Heart rate increased [Unknown]
